FAERS Safety Report 12200442 (Version 3)
Quarter: 2016Q2

REPORT INFORMATION
  Report Type: Report from Study
  Country: GB (occurrence: GB)
  Receive Date: 20160322
  Receipt Date: 20160510
  Transmission Date: 20160815
  Serious: Yes (Death, Other)
  Sender: FDA-Public Use
  Company Number: PHHO2016GB004172

PATIENT
  Sex: Female
  Weight: 59.6 kg

DRUGS (1)
  1. VOTRIENT [Suspect]
     Active Substance: PAZOPANIB HYDROCHLORIDE
     Indication: METASTATIC RENAL CELL CARCINOMA
     Route: 048

REACTIONS (6)
  - Somnolence [Unknown]
  - Malignant neoplasm progression [Fatal]
  - Intestinal perforation [Fatal]
  - Renal abscess [Fatal]
  - Acute kidney injury [Unknown]
  - Flank pain [Unknown]

NARRATIVE: CASE EVENT DATE: 20150314
